FAERS Safety Report 5491493-X (Version None)
Quarter: 2007Q4

REPORT INFORMATION
  Report Type: 
  Country: None (occurrence: None)
  Receive Date: 20071022
  Receipt Date: 20071012
  Transmission Date: 20080405
  Serious: Yes (Hospitalization)
  Sender: FDA-Public Use
  Company Number: FR-JNJFOC-20071000560

PATIENT
  Age: 50 Year
  Sex: Female

DRUGS (14)
  1. REMICADE [Suspect]
     Route: 042
  2. REMICADE [Suspect]
     Route: 042
  3. REMICADE [Suspect]
     Dosage: THERAPY STOPPED DUE TO PERSONAL REASONS
     Route: 042
  4. REMICADE [Suspect]
     Indication: CROHN'S DISEASE
     Route: 042
  5. LODOZ [Suspect]
     Indication: CROHN'S DISEASE
     Route: 048
  6. ATARAX [Suspect]
     Indication: CROHN'S DISEASE
  7. RABEPRAZOLE SODIUM [Suspect]
     Indication: CROHN'S DISEASE
  8. ZOLPIDEM TARTRATE [Suspect]
     Indication: CROHN'S DISEASE
  9. HEPARIN [Concomitant]
  10. HEPARIN [Concomitant]
  11. ENOXAPARIN SODIUM [Concomitant]
  12. ENOXAPARIN SODIUM [Concomitant]
  13. CORTICOIDS [Concomitant]
  14. SOLU-MEDROL [Concomitant]

REACTIONS (7)
  - ANAL ABSCESS [None]
  - COAGULATION FACTOR DECREASED [None]
  - CROHN'S DISEASE [None]
  - GASTROINTESTINAL INFECTION [None]
  - PROTHROMBIN TIME RATIO DECREASED [None]
  - THROMBOCYTOPENIA [None]
  - UROSEPSIS [None]
